FAERS Safety Report 13646517 (Version 2)
Quarter: 2017Q3

REPORT INFORMATION
  Report Type: Spontaneous
  Country: US (occurrence: US)
  Receive Date: 20170613
  Receipt Date: 20170714
  Transmission Date: 20171127
  Serious: No
  Sender: FDA-Public Use
  Company Number: US-PFIZER INC-2017252616

PATIENT
  Age: 74 Year
  Sex: Female
  Weight: 84.37 kg

DRUGS (1)
  1. IBRANCE [Suspect]
     Active Substance: PALBOCICLIB
     Indication: BREAST CANCER METASTATIC
     Dosage: 100 MG, CYCLIC (DAY 1-28 EVERY 28 DAYS)
     Route: 048
     Dates: start: 20170522

REACTIONS (5)
  - Bone pain [Unknown]
  - Drug dose omission [Unknown]
  - Pyrexia [Unknown]
  - Malaise [Unknown]
  - Nausea [Unknown]
